FAERS Safety Report 9980312 (Version 2)
Quarter: 2014Q2

REPORT INFORMATION
  Report Type: Report from Study
  Country: US (occurrence: US)
  Receive Date: 20140307
  Receipt Date: 20140618
  Transmission Date: 20141212
  Serious: Yes (Other)
  Sender: FDA-Public Use
  Company Number: US-ABBVIE-13P-163-1174650-00

PATIENT
  Age: 65 Year
  Sex: Female

DRUGS (32)
  1. HUMIRA [Suspect]
     Indication: CROHN^S DISEASE
     Dates: start: 20130901
  2. HYDRALAZINE [Suspect]
     Indication: HEART RATE DECREASED
  3. OXYCODONE [Concomitant]
     Indication: PRODUCT USED FOR UNKNOWN INDICATION
     Dosage: UP TO EIGHT PER DAY
  4. OXYCODONE [Concomitant]
  5. HYDRATION SALTS [Concomitant]
     Indication: SUPPLEMENTATION THERAPY
  6. MULTIVITAMIN [Concomitant]
     Indication: PRODUCT USED FOR UNKNOWN INDICATION
     Dosage: ONE TABLESPOON
  7. LINOLENIC ACID [Concomitant]
     Indication: PRODUCT USED FOR UNKNOWN INDICATION
  8. ACETYL CYSTEINE SENJU [Concomitant]
     Indication: PRODUCT USED FOR UNKNOWN INDICATION
  9. LYSINE [Concomitant]
     Indication: PRODUCT USED FOR UNKNOWN INDICATION
  10. B-12 [Concomitant]
     Indication: PRODUCT USED FOR UNKNOWN INDICATION
  11. B-12 [Concomitant]
     Indication: PRODUCT USED FOR UNKNOWN INDICATION
     Dosage: SHOT NOW AND THEN
  12. FISH OIL [Concomitant]
     Indication: PRODUCT USED FOR UNKNOWN INDICATION
     Dosage: TWO TABLESPOON
  13. GLUTAMINE [Concomitant]
     Indication: PRODUCT USED FOR UNKNOWN INDICATION
  14. IRON [Concomitant]
     Indication: PRODUCT USED FOR UNKNOWN INDICATION
  15. MAGNESIUM [Concomitant]
     Indication: PRODUCT USED FOR UNKNOWN INDICATION
  16. VITAMIN A [Concomitant]
     Indication: PRODUCT USED FOR UNKNOWN INDICATION
  17. VITAMIN C [Concomitant]
     Indication: PRODUCT USED FOR UNKNOWN INDICATION
  18. D3 [Concomitant]
     Indication: PRODUCT USED FOR UNKNOWN INDICATION
  19. VITAMIN K [Concomitant]
     Indication: PRODUCT USED FOR UNKNOWN INDICATION
  20. PAXIL [Concomitant]
     Indication: ANXIETY
     Dates: end: 201309
  21. PAXIL [Concomitant]
     Indication: NEUROPATHY PERIPHERAL
  22. TEMAZEPAM [Concomitant]
     Indication: ANXIETY
     Dates: end: 201309
  23. TEMAZEPAM [Concomitant]
     Indication: INSOMNIA
  24. ZOLPIDEM [Concomitant]
     Indication: INSOMNIA
     Dates: start: 201309
  25. GABAPENTIN [Concomitant]
     Indication: PRODUCT USED FOR UNKNOWN INDICATION
  26. GABAPENTIN [Concomitant]
  27. BUPRENORPHINE [Concomitant]
     Indication: PRODUCT USED FOR UNKNOWN INDICATION
  28. METHADONE [Concomitant]
     Indication: PRODUCT USED FOR UNKNOWN INDICATION
  29. CYMBALTA [Concomitant]
     Indication: PRODUCT USED FOR UNKNOWN INDICATION
  30. CYMBALTA [Concomitant]
  31. CYMBALTA [Concomitant]
  32. VITAMIN E [Concomitant]
     Indication: PRODUCT USED FOR UNKNOWN INDICATION

REACTIONS (11)
  - Laboratory test abnormal [Unknown]
  - Incorrect product storage [Unknown]
  - Back pain [Unknown]
  - Injection site pain [Recovered/Resolved]
  - Injection site pain [Recovered/Resolved]
  - Poor quality drug administered [Unknown]
  - Adverse drug reaction [Unknown]
  - Inappropriate schedule of drug administration [Unknown]
  - Blood iron increased [Unknown]
  - Incorrect dose administered [Unknown]
  - Incorrect dose administered [Unknown]
